FAERS Safety Report 13616173 (Version 2)
Quarter: 2017Q3

REPORT INFORMATION
  Report Type: Spontaneous
  Country: JP (occurrence: JP)
  Receive Date: 20170606
  Receipt Date: 20170704
  Transmission Date: 20171127
  Serious: Yes (Death)
  Sender: FDA-Public Use
  Company Number: JP-ASTRAZENECA-2017SE58358

PATIENT
  Age: 83 Year
  Sex: Female

DRUGS (1)
  1. CRESTOR OD [Suspect]
     Active Substance: ROSUVASTATIN CALCIUM
     Indication: BLOOD CHOLESTEROL INCREASED
     Dosage: DOSE UNKNOWN
     Route: 048

REACTIONS (2)
  - Jaundice [Not Recovered/Not Resolved]
  - Thalamus haemorrhage [Fatal]
